FAERS Safety Report 8373604-1 (Version None)
Quarter: 2012Q2

REPORT INFORMATION
  Report Type: 
  Country: None (occurrence: None)
  Receive Date: 20120521
  Receipt Date: 20120514
  Transmission Date: 20120825
  Serious: No
  Sender: FDA-Public Use
  Company Number: US-B.I. PHARMACEUTICALS,INC./RIDGEFIELD-2012-BP-10825BP

PATIENT
  Age: 77 Year
  Sex: Female

DRUGS (1)
  1. PRADAXA [Suspect]
     Indication: ATRIAL FIBRILLATION
     Dosage: 300 MG

REACTIONS (7)
  - HAEMORRHAGE [None]
  - BLOOD GLUCOSE INCREASED [None]
  - CONTUSION [None]
  - HAEMATOCHEZIA [None]
  - PRURITUS [None]
  - BACK PAIN [None]
  - LACERATION [None]
